FAERS Safety Report 21469719 (Version 2)
Quarter: 2022Q4

REPORT INFORMATION
  Report Type: Other
  Country: US (occurrence: None)
  Receive Date: 20221018
  Receipt Date: 20221027
  Transmission Date: 20230113
  Serious: Yes (Hospitalization)
  Sender: FDA-Public Use
  Company Number: US-ROCHE-3201295

PATIENT
  Age: 70 Year
  Sex: Male
  Weight: 99.8 kg

DRUGS (1)
  1. GAZYVA [Suspect]
     Active Substance: OBINUTUZUMAB
     Indication: Chronic lymphocytic leukaemia
     Dosage: 100 MG IV ON DAY 1 OF CYCLE 1 FOLLOWED BY 900 MG ON DAY 2 CYCLE 1 FOLLOWED BY 1000 MG ON DAY 8 + 15
     Route: 042

REACTIONS (2)
  - Chest pain [Unknown]
  - Product dose omission issue [Unknown]

NARRATIVE: CASE EVENT DATE: 20221014
